FAERS Safety Report 4850198-6 (Version None)
Quarter: 2005Q4

REPORT INFORMATION
  Report Type: 
  Country: None (occurrence: None)
  Receive Date: 20051123
  Receipt Date: 20050922
  Transmission Date: 20060501
  Serious: No
  Sender: FDA-Public Use
  Company Number: 218015

PATIENT
  Age: 44 Year
  Sex: Female

DRUGS (1)
  1. RAPTIVA [Suspect]
     Indication: PSORIASIS
     Dosage: 80 MG, 1/WEEK, UNK
     Route: 065

REACTIONS (2)
  - EOSINOPHIL COUNT DECREASED [None]
  - LYMPHOCYTE COUNT INCREASED [None]
